FAERS Safety Report 13346497 (Version 1)
Quarter: 2017Q1

REPORT INFORMATION
  Report Type: Spontaneous
  Country: US (occurrence: US)
  Receive Date: 20170317
  Receipt Date: 20170317
  Transmission Date: 20170428
  Serious: Yes (Disabling, Other)
  Sender: FDA-Public Use
  Company Number: None

PATIENT
  Age: 68 Year
  Sex: Female
  Weight: 108.96 kg

DRUGS (19)
  1. NUVIGIL [Concomitant]
     Active Substance: ARMODAFINIL
  2. LEVOTHYROXINE. [Concomitant]
     Active Substance: LEVOTHYROXINE
  3. CYMBALTA [Concomitant]
     Active Substance: DULOXETINE HYDROCHLORIDE
  4. PROAIR HFA [Concomitant]
     Active Substance: ALBUTEROL SULFATE
  5. RESTASIS [Concomitant]
     Active Substance: CYCLOSPORINE
  6. OXYCODONE [Concomitant]
     Active Substance: OXYCODONE
  7. WELLBUTRIN [Concomitant]
     Active Substance: BUPROPION HYDROCHLORIDE
  8. TUMERIC/BLK. PEPPER [Concomitant]
  9. MUPROPIAN CREAM [Concomitant]
  10. VALACYCLOVIR [Concomitant]
     Active Substance: VALACYCLOVIR HYDROCHLORIDE
  11. SYSTANE GEL [Concomitant]
  12. VALSARTAN HCTZ [Concomitant]
     Active Substance: HYDROCHLOROTHIAZIDE\VALSARTAN
  13. EPI-PENS [Concomitant]
  14. XELJANZ XR [Suspect]
     Active Substance: TOFACITINIB CITRATE
     Indication: RHEUMATOID ARTHRITIS
     Dosage: 1 PILL PER DAY
     Route: 048
     Dates: end: 20161215
  15. SYSTANE ULTRA [Concomitant]
     Active Substance: POLYETHYLENE GLYCOL 400\PROPYLENE GLYCOL
  16. LIQUID BENADRYL [Concomitant]
  17. LEVOCETERIZINE [Concomitant]
  18. VITAMIN D (ERGOCALCIFEROL) [Concomitant]
     Active Substance: ERGOCALCIFEROL
  19. ALPHA LIPOIC ACID [Concomitant]
     Active Substance: .ALPHA.-LIPOIC ACID

REACTIONS (14)
  - Mobility decreased [None]
  - Headache [None]
  - Dizziness [None]
  - Influenza like illness [None]
  - Flushing [None]
  - Dyspnoea [None]
  - Asthenia [None]
  - Fatigue [None]
  - Confusional state [None]
  - Hypoaesthesia [None]
  - Nausea [None]
  - Somnolence [None]
  - Herpes zoster [None]
  - Pyrexia [None]

NARRATIVE: CASE EVENT DATE: 20160524
